FAERS Safety Report 20057750 (Version 1)
Quarter: 2021Q4

REPORT INFORMATION
  Report Type: Report from Study
  Country: IT (occurrence: IT)
  Receive Date: 20211111
  Receipt Date: 20211111
  Transmission Date: 20220304
  Serious: Yes (Hospitalization)
  Sender: FDA-Public Use
  Company Number: None

PATIENT
  Age: 14 Year
  Sex: Female

DRUGS (4)
  1. XANAX [Suspect]
     Active Substance: ALPRAZOLAM
     Dosage: 15 ML, TOTAL
     Dates: start: 20210927, end: 20210927
  2. ACETAMINOPHEN [Suspect]
     Active Substance: ACETAMINOPHEN
     Dosage: 1000 MG, TOTAL
     Dates: start: 20210927, end: 20210927
  3. IBUPROFEN [Suspect]
     Active Substance: IBUPROFEN
     Dosage: 2 DF, TOTAL
     Dates: start: 20210927, end: 20210927
  4. SERTRALINE [Concomitant]
     Active Substance: SERTRALINE HYDROCHLORIDE
     Dosage: 75 MG

REACTIONS (4)
  - Overdose [Not Recovered/Not Resolved]
  - Slow speech [Not Recovered/Not Resolved]
  - Somnolence [Not Recovered/Not Resolved]
  - Asthenia [Not Recovered/Not Resolved]

NARRATIVE: CASE EVENT DATE: 20210927
